FAERS Safety Report 7272192-0 (Version None)
Quarter: 2011Q1

REPORT INFORMATION
  Report Type: 
  Country: None (occurrence: None)
  Receive Date: 20110203
  Receipt Date: 20110120
  Transmission Date: 20110831
  Serious: Yes (Hospitalization, Other)
  Sender: FDA-Public Use
  Company Number: PHHY2010TW87313

PATIENT
  Sex: Male
  Weight: 71.5 kg

DRUGS (2)
  1. ALISKIREN [Suspect]
     Indication: HYPERTENSION
     Dosage: 150 MG, UNK
     Route: 048
     Dates: start: 20100720
  2. ROCEPHIN [Concomitant]

REACTIONS (6)
  - PANCREATITIS ACUTE [None]
  - BLOOD AMYLASE INCREASED [None]
  - AORTIC ANEURYSM [None]
  - RENAL FAILURE ACUTE [None]
  - BLOOD CREATININE INCREASED [None]
  - BLOOD UREA INCREASED [None]
